FAERS Safety Report 6586189-7 (Version None)
Quarter: 2010Q1

REPORT INFORMATION
  Report Type: 
  Country: None (occurrence: None)
  Receive Date: 20100217
  Receipt Date: 20090107
  Transmission Date: 20100710
  Serious: No
  Sender: FDA-Public Use
  Company Number: US-ALLERGAN-0900130US

PATIENT
  Age: 63 Year
  Sex: Female

DRUGS (7)
  1. BOTOX COSMETIC [Suspect]
     Indication: SKIN WRINKLING
     Dosage: UNK, SINGLE
     Route: 030
     Dates: start: 20081215, end: 20081215
  2. CELEBREX [Concomitant]
     Dosage: 200 MG, QD
  3. NASONEX [Concomitant]
     Dosage: UNK, BID
  4. KLONOPIN [Concomitant]
     Dosage: 0.5 MG, QD
  5. CYMBALTA [Concomitant]
     Dosage: 30 MG, QD
  6. PERCOCET [Concomitant]
     Dosage: 3 X A WEEK
  7. SKELAXIN [Concomitant]
     Dosage: 3-5 X WEEK

REACTIONS (4)
  - EYE IRRITATION [None]
  - EYE PRURITUS [None]
  - EYE SWELLING [None]
  - OCULAR HYPERAEMIA [None]
